FAERS Safety Report 24079085 (Version 1)
Quarter: 2024Q3

REPORT INFORMATION
  Report Type: Spontaneous
  Country: US (occurrence: None)
  Receive Date: 20240710
  Receipt Date: 20240710
  Transmission Date: 20241016
  Serious: No
  Sender: Public
  Company Number: None

PATIENT
  Age: 34 Year
  Sex: Female

DRUGS (1)
  1. KESIMPTA [Suspect]
     Active Substance: OFATUMUMAB
     Indication: Multiple sclerosis
     Dosage: INJECT 20MG SUBCUTANEOUSLY AT WEEK 0, 1 AND 2 THEN 20MG ONCE A MONTH STAARTING WEEK 4 AS
     Route: 058
     Dates: start: 202405

REACTIONS (1)
  - Knee operation [None]
